FAERS Safety Report 4926434-4 (Version None)
Quarter: 2006Q1

REPORT INFORMATION
  Report Type: 
  Country: None (occurrence: None)
  Receive Date: 20060228
  Receipt Date: 20051117
  Transmission Date: 20060701
  Serious: No
  Sender: FDA-Public Use
  Company Number: SUS1-2005-00636

PATIENT
  Age: 69 Year
  Sex: Female
  Weight: 38.5 kg

DRUGS (3)
  1. LAMICTAL [Suspect]
     Route: 048
     Dates: end: 20050814
  2. CARBATROL [Suspect]
     Indication: EPILEPSY
     Dosage: 200MG TWICE PER DAY
     Route: 065
     Dates: start: 20050816, end: 20050818
  3. FOSAMAX [Concomitant]

REACTIONS (5)
  - DIZZINESS [None]
  - HEADACHE [None]
  - HOT FLUSH [None]
  - HYPERTENSION [None]
  - RASH [None]
